FAERS Safety Report 26141846 (Version 1)
Quarter: 2025Q4

REPORT INFORMATION
  Report Type: Spontaneous
  Country: EU (occurrence: EU)
  Receive Date: 20251210
  Receipt Date: 20251210
  Transmission Date: 20260118
  Serious: Yes (Hospitalization, Other)
  Sender: SANDOZ
  Company Number: EU-AMGEN-GRCSP2025230707

PATIENT
  Age: 59 Year
  Sex: Male

DRUGS (2)
  1. ADALIMUMAB [Suspect]
     Active Substance: ADALIMUMAB
     Indication: Crohn^s disease
     Dosage: UNK
     Route: 065
  2. FILGRASTIM [Suspect]
     Active Substance: FILGRASTIM
     Indication: Febrile neutropenia
     Dosage: UNK
     Route: 065

REACTIONS (11)
  - Febrile neutropenia [Unknown]
  - Acute myeloid leukaemia [Unknown]
  - Back pain [Unknown]
  - Crohn^s disease [Unknown]
  - Ileal stenosis [Unknown]
  - Anal abscess [Unknown]
  - Pancytopenia [Unknown]
  - Lupus-like syndrome [Unknown]
  - Arthropathy [Unknown]
  - Pain [Unknown]
  - Therapy non-responder [Unknown]

NARRATIVE: CASE EVENT DATE: 20210201
